FAERS Safety Report 8177035-9 (Version None)
Quarter: 2012Q1

REPORT INFORMATION
  Report Type: 
  Country: None (occurrence: None)
  Receive Date: 20120301
  Receipt Date: 20120226
  Transmission Date: 20120608
  Serious: Yes (Death)
  Sender: FDA-Public Use
  Company Number: IL-MEDIMMUNE-MEDI-0014402

PATIENT
  Sex: Female
  Weight: 6.48 kg

DRUGS (1)
  1. SYNAGIS [Suspect]
     Route: 030
     Dates: start: 20111102, end: 20120104

REACTIONS (2)
  - DEATH [None]
  - RESTLESSNESS [None]
